FAERS Safety Report 26187645 (Version 1)
Quarter: 2025Q4

REPORT INFORMATION
  Report Type: Spontaneous
  Country: EU (occurrence: EU)
  Receive Date: 20251222
  Receipt Date: 20251222
  Transmission Date: 20260118
  Serious: Yes (Hospitalization, Other)
  Sender: CIPLA
  Company Number: EU-AFSSAPS-TS2025001225

PATIENT

DRUGS (1)
  1. NINTEDANIB [Suspect]
     Active Substance: NINTEDANIB
     Indication: Lung disorder
     Route: 048
     Dates: start: 20250909, end: 20251010

REACTIONS (1)
  - Cholecystitis acute [Recovered/Resolved]
